FAERS Safety Report 20510291 (Version 1)
Quarter: 2022Q1

REPORT INFORMATION
  Report Type: Spontaneous
  Country: GB (occurrence: GB)
  Receive Date: 20220224
  Receipt Date: 20220224
  Transmission Date: 20220423
  Serious: Yes (Hospitalization)
  Sender: FDA-Public Use
  Company Number: None

PATIENT
  Age: 86 Year
  Sex: Female

DRUGS (7)
  1. LANSOPRAZOLE [Interacting]
     Active Substance: LANSOPRAZOLE
     Dosage: LANSOPRAZOLE 30MG GASTRO-RESISTANT CAPSULES 1 BD AM/TEA - RXD 1 OM + HELD HYPONA
  2. LOSARTAN [Interacting]
     Active Substance: LOSARTAN
     Dosage: LOSARTAN 50MG TABLETS 1 OD
  3. ATORVASTATIN [Concomitant]
     Active Substance: ATORVASTATIN
     Dosage: ATORVASTATIN 10MG TABLETS 1 OD
  4. BISOPROLOL [Concomitant]
     Active Substance: BISOPROLOL
     Dosage: BISOPROLOL 1.25MG TABLETS 1 BD
  5. CHOLECALCIFEROL [Concomitant]
     Active Substance: CHOLECALCIFEROL
     Dosage: COLECALCIFEROL 800UNIT TABLETS 1
  6. EDOXABAN [Concomitant]
     Active Substance: EDOXABAN
     Dosage: EDOXABAN 30MG TABLETS 1 OD
  7. FUROSEMIDE [Interacting]
     Active Substance: FUROSEMIDE
     Dosage: FUROSEMIDE 40MG TABLETS 1 OM

REACTIONS (4)
  - Hyponatraemia [Recovered/Resolved]
  - Hypomagnesaemia [Unknown]
  - Cerebrovascular accident [Unknown]
  - Drug interaction [Unknown]
